FAERS Safety Report 12400995 (Version 4)
Quarter: 2017Q2

REPORT INFORMATION
  Report Type: Spontaneous
  Country: US (occurrence: US)
  Receive Date: 20160525
  Receipt Date: 20170606
  Transmission Date: 20170830
  Serious: No
  Sender: FDA-Public Use
  Company Number: US-SA-2015SA134656

PATIENT
  Age: 75 Year
  Sex: Female

DRUGS (1)
  1. LANTUS [Suspect]
     Active Substance: INSULIN GLARGINE
     Indication: TYPE 2 DIABETES MELLITUS
     Dosage: 10 UNITS AND SOME DAYS 20 UNITS
     Route: 065
     Dates: start: 2013

REACTIONS (10)
  - Thyroid disorder [Unknown]
  - Hypoglycaemia [Unknown]
  - Malaise [Unknown]
  - Hypoaesthesia [Unknown]
  - Visual impairment [Unknown]
  - Product use issue [Unknown]
  - Peripheral swelling [Unknown]
  - Paraesthesia oral [Unknown]
  - Fatigue [Unknown]
  - Paraesthesia [Unknown]
